FAERS Safety Report 24715042 (Version 2)
Quarter: 2025Q3

REPORT INFORMATION
  Report Type: Spontaneous
  Country: GB (occurrence: GB)
  Receive Date: 20241210
  Receipt Date: 20250809
  Transmission Date: 20251020
  Serious: Yes (Other)
  Sender: ALEXION PHARMACEUTICALS
  Company Number: GB-AstraZeneca-CH-00763549A

PATIENT
  Sex: Female

DRUGS (3)
  1. DURVALUMAB [Suspect]
     Active Substance: DURVALUMAB
     Indication: Cholangiocarcinoma
     Dosage: 1500 MILLIGRAM, Q4W
     Route: 065
  2. CISPLATIN [Concomitant]
     Active Substance: CISPLATIN
  3. GEMCITABINE [Concomitant]
     Active Substance: GEMCITABINE

REACTIONS (2)
  - Mouth ulceration [Unknown]
  - Drug intolerance [Unknown]
